FAERS Safety Report 15679919 (Version 1)
Quarter: 2018Q4

REPORT INFORMATION
  Report Type: Report from Study
  Country: None (occurrence: BR)
  Receive Date: 20181203
  Receipt Date: 20181203
  Transmission Date: 20190205
  Serious: Yes (Hospitalization, Other)
  Sender: FDA-Public Use
  Company Number: BR-ABBVIE-18K-020-2576154-00

PATIENT
  Age: 32 Year
  Sex: Female
  Weight: 64 kg

DRUGS (1)
  1. HUMIRA [Suspect]
     Active Substance: ADALIMUMAB
     Indication: ANKYLOSING SPONDYLITIS
     Route: 058
     Dates: start: 20170807, end: 201810

REACTIONS (2)
  - Ovarian neoplasm [Recovering/Resolving]
  - Leiomyoma [Recovering/Resolving]

NARRATIVE: CASE EVENT DATE: 201808
